FAERS Safety Report 9425206 (Version 1)
Quarter: 2013Q3

REPORT INFORMATION
  Report Type: Spontaneous
  Country: FR (occurrence: FR)
  Receive Date: 20130729
  Receipt Date: 20130729
  Transmission Date: 20140515
  Serious: Yes (Other)
  Sender: FDA-Public Use
  Company Number: FR-PFIZER INC-2013213895

PATIENT
  Age: 31 Year
  Sex: Female
  Weight: 39 kg

DRUGS (1)
  1. MINIDRIL [Suspect]
     Indication: MENSTRUAL CYCLE MANAGEMENT
     Dosage: (ETHINYLESTRADIOL 30UG, LEVONORGESTREL 150UG), UNK
     Route: 048
     Dates: start: 20130620, end: 20130702

REACTIONS (9)
  - Amenorrhoea [Recovered/Resolved]
  - Asthenia [Recovered/Resolved]
  - Pain [Recovered/Resolved]
  - Tinnitus [Recovered/Resolved]
  - Vaginal discharge [Recovered/Resolved]
  - Somnolence [Recovered/Resolved]
  - Depression [Recovered/Resolved]
  - Pyrexia [Recovered/Resolved]
  - Chills [Recovered/Resolved]
